FAERS Safety Report 7698797-0 (Version None)
Quarter: 2011Q3

REPORT INFORMATION
  Report Type: 
  Country: None (occurrence: None)
  Receive Date: 20110819
  Receipt Date: 20110804
  Transmission Date: 20111222
  Serious: Yes (Other)
  Sender: FDA-Public Use
  Company Number: KP-WATSON-2011-13172

PATIENT
  Age: 71 Year
  Sex: Male

DRUGS (6)
  1. PREDNISOLONE [Suspect]
     Dosage: 15 MG, DAILY
     Route: 048
  2. PREDNISOLONE [Suspect]
     Indication: PEMPHIGUS
     Dosage: 20 MG, TID
     Route: 048
  3. PREDNISOLONE [Suspect]
     Dosage: 40 MG, DAILY
     Route: 048
  4. PREDNISOLONE [Suspect]
     Dosage: 30 MG, DAILY
     Route: 048
  5. PREDNISOLONE [Suspect]
     Dosage: 25 MG, DAILY
     Route: 048
  6. PREDNISOLONE [Suspect]
     Dosage: 10 MG, DAILY 9TAPERED EVERY OTHER TWO WKS TO 10 MG QD
     Route: 048

REACTIONS (2)
  - KERATITIS HERPETIC [None]
  - WITHDRAWAL SYNDROME [None]
